FAERS Safety Report 23227402 (Version 2)
Quarter: 2024Q1

REPORT INFORMATION
  Report Type: Spontaneous
  Country: US (occurrence: US)
  Receive Date: 20231124
  Receipt Date: 20240208
  Transmission Date: 20240410
  Serious: Yes (Other)
  Sender: FDA-Public Use
  Company Number: US-PFIZER INC-PV202300190416

PATIENT
  Age: 80 Year
  Sex: Male
  Weight: 68.03 kg

DRUGS (1)
  1. VYNDAMAX [Suspect]
     Active Substance: TAFAMIDIS
     Dosage: 61 MG
     Dates: start: 202312

REACTIONS (2)
  - Cerebrovascular accident [Not Recovered/Not Resolved]
  - Asthenia [Unknown]
